FAERS Safety Report 6902778-1 (Version None)
Quarter: 2010Q3

REPORT INFORMATION
  Report Type: 
  Country: None (occurrence: None)
  Receive Date: 20100803
  Receipt Date: 20080630
  Transmission Date: 20110219
  Serious: No
  Sender: FDA-Public Use
  Company Number: US-PFIZER INC-2008055048

PATIENT
  Sex: Female
  Weight: 59.5 kg

DRUGS (8)
  1. LYRICA [Suspect]
     Indication: NEURALGIA
     Route: 048
     Dates: end: 20080625
  2. ZANAFLEX [Concomitant]
  3. BACLOFEN [Concomitant]
  4. METHYLPHENIDATE HCL [Concomitant]
  5. VICODIN [Concomitant]
  6. LIPITOR [Concomitant]
  7. VITAMIN D [Concomitant]
  8. DRUG, UNSPECIFIED [Concomitant]

REACTIONS (3)
  - DRUG INEFFECTIVE [None]
  - THYROID FUNCTION TEST ABNORMAL [None]
  - VITAMIN D ABNORMAL [None]
